FAERS Safety Report 5684456-2 (Version None)
Quarter: 2008Q1

REPORT INFORMATION
  Report Type: 
  Country: None (occurrence: None)
  Receive Date: 20080328
  Receipt Date: 20080306
  Transmission Date: 20080703
  Serious: Yes (Other)
  Sender: FDA-Public Use
  Company Number: AU-MERCK-0803AUS00152

PATIENT
  Age: 84 Year
  Sex: Female
  Weight: 63 kg

DRUGS (1)
  1. FOSAMAX [Suspect]
     Indication: OSTEOPOROSIS
     Route: 048
     Dates: start: 19980101

REACTIONS (3)
  - ARTHROPATHY [None]
  - FALL [None]
  - JOINT INJURY [None]
